FAERS Safety Report 4957705-3 (Version None)
Quarter: 2006Q1

REPORT INFORMATION
  Report Type: 
  Country: None (occurrence: None)
  Receive Date: 20060330
  Receipt Date: 20060317
  Transmission Date: 20060701
  Serious: Yes (Life-Threatening, Hospitalization)
  Sender: FDA-Public Use
  Company Number: US-JNJFOC-20060304389

PATIENT
  Age: 56 Year
  Sex: Male
  Weight: 118.84 kg

DRUGS (3)
  1. CLADRIBINE [Suspect]
     Indication: MULTIPLE SCLEROSIS
  2. NOVANTRONE [Suspect]
     Indication: MULTIPLE SCLEROSIS
  3. COPAXONE [Concomitant]
     Indication: MULTIPLE SCLEROSIS

REACTIONS (3)
  - HEPATIC ENZYME INCREASED [None]
  - METASTASES TO LIVER [None]
  - OESOPHAGEAL CARCINOMA [None]
